FAERS Safety Report 14256482 (Version 5)
Quarter: 2018Q1

REPORT INFORMATION
  Report Type: Spontaneous
  Country: US (occurrence: US)
  Receive Date: 20171206
  Receipt Date: 20180220
  Transmission Date: 20180508
  Serious: No
  Sender: FDA-Public Use
  Company Number: US-PFIZER INC-2017521850

PATIENT
  Age: 75 Year
  Sex: Female
  Weight: 58.96 kg

DRUGS (5)
  1. VITAMIN D [Concomitant]
     Active Substance: CHOLECALCIFEROL
     Dosage: UNK
  2. XALKORI [Suspect]
     Active Substance: CRIZOTINIB
     Dosage: 250 MG, 2X/DAY
     Dates: start: 20171126
  3. XALKORI [Suspect]
     Active Substance: CRIZOTINIB
     Indication: LUNG CANCER METASTATIC
     Dosage: 1 DF, 2X/DAY (EVERY TWELVE HOURS)
     Route: 048
  4. VALSARTAN HCTZ [Concomitant]
     Active Substance: HYDROCHLOROTHIAZIDE\VALSARTAN
     Indication: BLOOD PRESSURE ABNORMAL
     Dosage: 1 DF, 1X/DAY
     Route: 048
  5. COQ 10 [Concomitant]
     Active Substance: UBIDECARENONE
     Dosage: UNK

REACTIONS (3)
  - Nausea [Recovered/Resolved]
  - Diarrhoea [Unknown]
  - Dyspnoea [Unknown]
